FAERS Safety Report 21787706 (Version 1)
Quarter: 2022Q4

REPORT INFORMATION
  Report Type: Spontaneous
  Country: FR (occurrence: FR)
  Receive Date: 20221228
  Receipt Date: 20221228
  Transmission Date: 20230112
  Serious: Yes (Other)
  Sender: FDA-Public Use
  Company Number: None

PATIENT
  Age: 73 Year
  Sex: Female
  Weight: 48 kg

DRUGS (1)
  1. ZOLEDRONIC ACID [Suspect]
     Active Substance: ZOLEDRONIC ACID
     Indication: Osteoporosis
     Dosage: 5 MG (ROUTE OF ADMINISTRATION-INJECTION INTRA-VEINEUSE)
     Route: 042
     Dates: start: 20221017, end: 20221017

REACTIONS (3)
  - Chest pain [Recovering/Resolving]
  - Dyspnoea [Recovering/Resolving]
  - Bronchial obstruction [Recovering/Resolving]

NARRATIVE: CASE EVENT DATE: 20221017
